FAERS Safety Report 8167438-0 (Version None)
Quarter: 2012Q1

REPORT INFORMATION
  Report Type: 
  Country: None (occurrence: None)
  Receive Date: 20120221
  Receipt Date: 20120203
  Transmission Date: 20120608
  Serious: Yes (Other)
  Sender: FDA-Public Use
  Company Number: 2011MPI00275

PATIENT
  Age: 26 Year
  Sex: Female

DRUGS (2)
  1. BRENTUXIMAB VEDOTIN (BRENTUXIMAB VEDOTIN) INJECTION [Suspect]
     Indication: HODGKIN'S DISEASE
     Dosage: 1.8 MG/KG, QCYCLE, INTRAVENOUS
     Route: 042
     Dates: start: 20110712
  2. FENTANYL [Concomitant]

REACTIONS (14)
  - ALOPECIA [None]
  - VOMITING [None]
  - NEOPLASM PROGRESSION [None]
  - ALANINE AMINOTRANSFERASE INCREASED [None]
  - HODGKIN'S DISEASE [None]
  - POLYNEUROPATHY [None]
  - GAMMA-GLUTAMYLTRANSFERASE INCREASED [None]
  - DECREASED APPETITE [None]
  - MALAISE [None]
  - BLOOD ALKALINE PHOSPHATASE INCREASED [None]
  - LIVER FUNCTION TEST ABNORMAL [None]
  - NAUSEA [None]
  - HYPERSENSITIVITY [None]
  - ASPARTATE AMINOTRANSFERASE INCREASED [None]
